FAERS Safety Report 20066648 (Version 1)
Quarter: 2021Q4

REPORT INFORMATION
  Report Type: Spontaneous
  Country: FR (occurrence: FR)
  Receive Date: 20211115
  Receipt Date: 20211115
  Transmission Date: 20220303
  Serious: Yes (Hospitalization, Other)
  Sender: FDA-Public Use
  Company Number: FR-FRESENIUS KABI-FK202111602

PATIENT
  Age: 75 Year
  Sex: Female
  Weight: 52 kg

DRUGS (18)
  1. IRINOTECAN [Suspect]
     Active Substance: IRINOTECAN
     Indication: Adenocarcinoma pancreas
     Dosage: UNK (IRINOTECAN KABI 20 MG / ML CONCENTRATE FOR SOLUTION FOR INFUSION, 1ST CURE (C1))
     Route: 042
     Dates: start: 20210412
  2. IRINOTECAN [Suspect]
     Active Substance: IRINOTECAN
     Indication: Product used for unknown indication
     Dosage: UNK (2ND CURE (C2))
     Route: 042
     Dates: start: 20210427
  3. IRINOTECAN [Suspect]
     Active Substance: IRINOTECAN
     Dosage: UNK (AT CURE 3)
     Route: 042
     Dates: start: 20210511
  4. IRINOTECAN [Suspect]
     Active Substance: IRINOTECAN
     Dosage: UNK (THE PATIENT WAS TREATED WITH THE COMPLETE DOSE OF IRINOTECAN WITH AN INFUSION OVER 3 HOURS AT C
     Route: 042
     Dates: start: 20210608
  5. OXALIPLATIN [Suspect]
     Active Substance: OXALIPLATIN
     Indication: Adenocarcinoma pancreas
     Dosage: 85 MILLIGRAM/SQ. METER (OXALIPLATINE ACCORD 5 MG/ML, CONCENTRATE FOR SOLUTION FOR INFUSION, INFUSED
     Route: 042
     Dates: start: 20210427
  6. OXALIPLATIN [Suspect]
     Active Substance: OXALIPLATIN
     Indication: Product used for unknown indication
     Dosage: UNK (AT CURE 4 REINTRODUCTION AT 70 PERCENT OF THE DOSAGE)
     Route: 065
     Dates: start: 20210525
  7. OXALIPLATIN [Suspect]
     Active Substance: OXALIPLATIN
     Dosage: UNK (AT CURE 4 OVER 2 HOURS70 PERCENT OF THE DOSE OF OXALIPLATINE OVER 2 HOURS)
     Route: 042
     Dates: start: 20210608
  8. FLUOROURACIL\IRINOTECAN\LEUCOVORIN\OXALIPLATIN [Suspect]
     Active Substance: FLUOROURACIL\IRINOTECAN\LEUCOVORIN\OXALIPLATIN
     Indication: Adenocarcinoma pancreas
     Dosage: UNK (1ST CURE (C1))
     Route: 065
     Dates: start: 20210412
  9. CLORAZEPATE DIPOTASSIUM [Suspect]
     Active Substance: CLORAZEPATE DIPOTASSIUM
     Indication: Premedication
     Dosage: 10 MILLIGRAM (STARTED BEFORE CHEMOTHERAPY)
     Route: 065
     Dates: start: 20210608
  10. ONDANSETRON [Concomitant]
     Active Substance: ONDANSETRON
     Indication: Nausea
     Dosage: 8 MILLIGRAM
     Route: 065
  11. APREPITANT [Concomitant]
     Active Substance: APREPITANT
     Indication: Product used for unknown indication
     Dosage: 125 MILLIGRAM (D1)
     Route: 065
  12. APREPITANT [Concomitant]
     Active Substance: APREPITANT
     Dosage: 80 MILLIGRAM (D2 AND D3)
     Route: 065
  13. TINZAPARIN SODIUM [Concomitant]
     Active Substance: TINZAPARIN SODIUM
     Indication: Product used for unknown indication
     Dosage: 0.45 MILLILITER, ONCE A DAY
     Route: 058
  14. FILGRASTIM [Concomitant]
     Active Substance: FILGRASTIM
     Indication: Product used for unknown indication
     Dosage: UNK (PER DAY AT D5 OF THE CURE)
     Route: 058
  15. PANCREATIN [Concomitant]
     Active Substance: PANCRELIPASE
     Indication: Product used for unknown indication
     Dosage: UNK (40000 UI 2 IN MORNING, 2 AT LUNCH AND 2 IN EVENING)
     Route: 065
  16. PENICILLIN V BENZATHINE [Concomitant]
     Active Substance: PENICILLIN V BENZATHINE
     Indication: Product used for unknown indication
     Dosage: UNK (1 MUI 1 IN MORNING AND 1 IN EVENING)
     Route: 065
  17. LANSOPRAZOLE [Concomitant]
     Active Substance: LANSOPRAZOLE
     Indication: Product used for unknown indication
     Dosage: 30 MILLIGRAM (1 IN MORNING)
     Route: 065
  18. TRIMEBUTINE [Concomitant]
     Active Substance: TRIMEBUTINE
     Indication: Pain
     Dosage: 100 MILLIGRAM
     Route: 065

REACTIONS (7)
  - Neuropathy peripheral [Recovering/Resolving]
  - Asthenia [Recovering/Resolving]
  - Diarrhoea [Recovering/Resolving]
  - Nausea [Recovering/Resolving]
  - Dysarthria [Recovering/Resolving]
  - Muscle spasms [Recovering/Resolving]
  - Aphasia [Recovering/Resolving]

NARRATIVE: CASE EVENT DATE: 20210412
